FAERS Safety Report 11897852 (Version 1)
Quarter: 2016Q1

REPORT INFORMATION
  Report Type: Spontaneous
  Country: US (occurrence: US)
  Receive Date: 20160108
  Receipt Date: 20160108
  Transmission Date: 20160526
  Serious: No
  Sender: FDA-Public Use
  Company Number: US-ASTRAZENECA-2015SF31242

PATIENT
  Sex: Female

DRUGS (1)
  1. SEROQUEL [Suspect]
     Active Substance: QUETIAPINE FUMARATE
     Indication: SOMNOLENCE
     Route: 048
     Dates: start: 200702

REACTIONS (9)
  - Peripheral swelling [Unknown]
  - Injury [Unknown]
  - Arthralgia [Unknown]
  - Pain in extremity [Unknown]
  - Abdominal pain [Unknown]
  - Mental disorder [Unknown]
  - Pain [Unknown]
  - Bone pain [Unknown]
  - Post-traumatic stress disorder [Unknown]
